FAERS Safety Report 8381776-8 (Version None)
Quarter: 2012Q2

REPORT INFORMATION
  Report Type: 
  Country: None (occurrence: None)
  Receive Date: 20120524
  Receipt Date: 20120515
  Transmission Date: 20120825
  Serious: Yes (Other)
  Sender: FDA-Public Use
  Company Number: US-RB-040086-12

PATIENT
  Age: 84 Year
  Sex: Female

DRUGS (3)
  1. MUCINEX DM [Suspect]
     Indication: COUGH
     Route: 048
     Dates: start: 20120504
  2. MUCINEX DM [Suspect]
     Indication: INCREASED UPPER AIRWAY SECRETION
     Route: 048
     Dates: start: 20120504
  3. PEPCID [Concomitant]
     Indication: PRODUCT USED FOR UNKNOWN INDICATION

REACTIONS (6)
  - FATIGUE [None]
  - INCREASED VISCOSITY OF NASAL SECRETION [None]
  - INCORRECT DRUG ADMINISTRATION DURATION [None]
  - MEMORY IMPAIRMENT [None]
  - WHEEZING [None]
  - APHONIA [None]
